FAERS Safety Report 8266459-7 (Version None)
Quarter: 2012Q2

REPORT INFORMATION
  Report Type: 
  Country: None (occurrence: None)
  Receive Date: 20120406
  Receipt Date: 20120402
  Transmission Date: 20120825
  Serious: Yes (Hospitalization)
  Sender: FDA-Public Use
  Company Number: AE-MERCK-1107USA03898

PATIENT
  Age: 43 Year
  Sex: Male

DRUGS (1)
  1. JANUVIA [Suspect]
     Indication: TYPE 2 DIABETES MELLITUS
     Route: 048
     Dates: start: 20100101

REACTIONS (3)
  - NEPHROLITHIASIS [None]
  - PANCREATITIS ACUTE [None]
  - CHOLESTASIS [None]
